FAERS Safety Report 9645403 (Version 3)
Quarter: 2013Q4

REPORT INFORMATION
  Report Type: Spontaneous
  Country: IT (occurrence: None)
  Receive Date: 20131023
  Receipt Date: 20131220
  Transmission Date: 20140711
  Serious: Yes (Hospitalization)
  Sender: FDA-Public Use
  Company Number: AUR-APL-2013-08783

PATIENT
  Age: 79 Year
  Sex: Male
  Weight: 76 kg

DRUGS (6)
  1. LEVOFLOXACIN (LEVOFLOXACIN) [Suspect]
     Indication: INFECTION
     Dosage: 1 IN 1 D
     Route: 048
     Dates: start: 20130810, end: 20130812
  2. GLIBOMET [Suspect]
     Indication: TYPE 2 DIABETES MELLITUS
     Dosage: 2 DOSAGE FORMS (2 DOSAGE FORMS, 1 IN 1 D)
     Route: 048
     Dates: start: 20120101, end: 20130812
  3. TRIATEC HCT (SALUTEC) [Concomitant]
  4. CARDURA (DOXAZSIN MESILATE) [Concomitant]
  5. OSIPINE (BARNIDIPINE HYDROCHLORIDE) [Concomitant]
  6. SIMVASTATIN (SIMVASTATIN) [Concomitant]

REACTIONS (2)
  - Aphasia [None]
  - Hypoglycaemia [None]
